FAERS Safety Report 4265871-0 (Version None)
Quarter: 2004Q1

REPORT INFORMATION
  Report Type: 
  Country: None (occurrence: None)
  Receive Date: 20040106
  Receipt Date: 20031222
  Transmission Date: 20041129
  Serious: Yes (Other)
  Sender: FDA-Public Use
  Company Number: 175992

PATIENT
  Age: 54 Year
  Sex: Female

DRUGS (9)
  1. AVONEX [Suspect]
     Indication: MULTIPLE SCLEROSIS
     Dosage: 30 MCG QW IM
     Route: 030
     Dates: start: 19960901
  2. LIPITOR [Concomitant]
  3. TRICOR [Concomitant]
  4. COREG [Concomitant]
  5. FOSAMAX [Concomitant]
  6. ZOLOFT [Concomitant]
  7. AMANTADINE HCL [Concomitant]
  8. DOXEPIN HCL [Concomitant]
  9. PROVIGIL [Concomitant]

REACTIONS (2)
  - BREAST CANCER [None]
  - INFLUENZA LIKE ILLNESS [None]
